FAERS Safety Report 20430023 (Version 1)
Quarter: 2022Q1

REPORT INFORMATION
  Report Type: Report from Study
  Country: FR (occurrence: FR)
  Receive Date: 20220204
  Receipt Date: 20220204
  Transmission Date: 20220423
  Serious: Yes (Hospitalization)
  Sender: FDA-Public Use
  Company Number: FR-SERVIER-S19005364

PATIENT

DRUGS (22)
  1. PEGASPARGASE [Suspect]
     Active Substance: PEGASPARGASE
     Indication: Acute lymphocytic leukaemia
     Dosage: 2800 IU, QD
     Route: 042
     Dates: start: 20190105, end: 20190213
  2. DEXAMETHASONE SODIUM PHOSPHATE [Suspect]
     Active Substance: DEXAMETHASONE SODIUM PHOSPHATE
     Indication: Acute lymphocytic leukaemia
     Dosage: 12 MG, QD, D1-D7 AND D15-D21
     Route: 048
     Dates: start: 20190102, end: 20190122
  3. VINCRISTINE SULFATE [Suspect]
     Active Substance: VINCRISTINE SULFATE
     Indication: Acute lymphocytic leukaemia
     Dosage: 1.7 MG, QD, D1, D8, D15 AND D43
     Route: 042
     Dates: start: 20190102
  4. ADRIAMYCIN [Suspect]
     Active Substance: DOXORUBICIN HYDROCHLORIDE
     Indication: Acute lymphocytic leukaemia
     Dosage: 30 MG, QD  D1, 8 AND 15
     Route: 042
     Dates: start: 20190102, end: 20190116
  5. THIOGUANINE [Suspect]
     Active Substance: THIOGUANINE
     Indication: Acute lymphocytic leukaemia
     Dosage: 68 MG, QD, D29-D42
     Route: 048
     Dates: start: 20190130, end: 20190212
  6. CYCLOPHOSPHAMIDE [Suspect]
     Active Substance: CYCLOPHOSPHAMIDE
     Indication: Acute lymphocytic leukaemia
     Dosage: 1080 MG, QD, D29
     Route: 042
     Dates: start: 20190130, end: 20190130
  7. CYTARABINE [Suspect]
     Active Substance: CYTARABINE
     Indication: Acute lymphocytic leukaemia
     Dosage: 30 MG, QD, D4 AND D31
     Route: 037
     Dates: start: 20190105, end: 20190201
  8. CYTARABINE [Suspect]
     Active Substance: CYTARABINE
     Dosage: 80 MG, QD, D31-D34 AND D38-D43
     Route: 042
     Dates: start: 20190201, end: 20190211
  9. TN UNSPECIFIED [Concomitant]
     Indication: Acute lymphocytic leukaemia
     Dosage: 15 MG, QD, D4 AND D31
     Route: 037
     Dates: start: 20190105, end: 20190201
  10. TN UNSPECIFIED [Concomitant]
     Indication: Acute lymphocytic leukaemia
     Dosage: 15 MG, QD  D4 D31
     Route: 037
     Dates: start: 20190105, end: 20190201
  11. TN UNSPECIFIED [Concomitant]
     Indication: Pain
     Dosage: 2400 MG, QD
     Route: 042
     Dates: start: 20180619
  12. TN UNSPECIFIED [Concomitant]
     Indication: Pyrexia
  13. ONDANSETRON [Concomitant]
     Active Substance: ONDANSETRON
     Indication: Vomiting
     Dosage: 16 MG, QD
     Route: 048
     Dates: start: 20180626
  14. ONDANSETRON [Concomitant]
     Active Substance: ONDANSETRON
     Indication: Nausea
     Dosage: 16 MG, QD
     Route: 042
     Dates: start: 20180626
  15. Calcidose [Concomitant]
     Indication: Bone demineralisation
     Dosage: 500 MG, QD
     Route: 048
     Dates: start: 20180628
  16. CHOLECALCIFEROL [Concomitant]
     Active Substance: CHOLECALCIFEROL
     Indication: Bone demineralisation
     Dosage: 100 KIU EVERY 3 MONTHS
     Route: 048
     Dates: start: 20180628
  17. OMEPRAZOLE [Concomitant]
     Active Substance: OMEPRAZOLE
     Indication: Gastritis
     Dosage: 20 MG, QD
     Route: 048
     Dates: start: 20180701
  18. TN UNSPECIFIED [Concomitant]
     Indication: Hypersensitivity
     Dosage: 100 MG, QD
     Route: 042
     Dates: start: 20180712
  19. URSODIOL [Concomitant]
     Active Substance: URSODIOL
     Indication: Cholestasis
     Dosage: 600 MG, QD
     Route: 048
     Dates: start: 20180924
  20. PENTACARINAT [Concomitant]
     Active Substance: PENTAMIDINE ISETHIONATE
     Indication: Antifungal prophylaxis
     Dosage: 300 MG, QD
     Route: 055
     Dates: start: 20180927
  21. ATARAX [Concomitant]
     Active Substance: HYDROXYZINE HYDROCHLORIDE
     Indication: Mood altered
     Dosage: 25 MG, QD
     Route: 048
     Dates: start: 20181014
  22. FUROSEMIDE [Concomitant]
     Active Substance: FUROSEMIDE
     Indication: Oedema
     Dosage: 15 MG, QD
     Route: 042

REACTIONS (3)
  - Venoocclusive liver disease [Recovered/Resolved]
  - Enterocolitis [Recovered/Resolved]
  - Sepsis [Recovered/Resolved]

NARRATIVE: CASE EVENT DATE: 20190215
